FAERS Safety Report 4699568-X (Version None)
Quarter: 2005Q2

REPORT INFORMATION
  Report Type: 
  Country: None (occurrence: None)
  Receive Date: 20050622
  Receipt Date: 20050610
  Transmission Date: 20051028
  Serious: Yes (Hospitalization)
  Sender: FDA-Public Use
  Company Number: HQWYE354210JUN05

PATIENT
  Age: 13 Year
  Sex: Female

DRUGS (4)
  1. ADVIL [Suspect]
     Indication: DYSMENORRHOEA
     Dosage: 2 TABLET 1X PER 1 DAY, ORAL
     Route: 048
     Dates: start: 20050518, end: 20050519
  2. FLURBIPROFEN [Suspect]
     Indication: DYSMENORRHOEA
     Dosage: 100 MG 1X PER 1 DAY
     Dates: start: 20050518, end: 20050519
  3. ACETAMINOPHEN [Concomitant]
  4. SPASFON (PHLOROGLUCINOL/TRIMETHYLPHLOROGLUCINOL) [Concomitant]

REACTIONS (3)
  - ANAEMIA [None]
  - HAEMATOCOLPOS [None]
  - SHOCK HAEMORRHAGIC [None]
